FAERS Safety Report 8889531 (Version 2)
Quarter: 2012Q4

REPORT INFORMATION
  Report Type: 
  Country: GB (occurrence: GB)
  Receive Date: 20121107
  Receipt Date: 20121210
  Transmission Date: 20130627
  Serious: Yes (Hospitalization)
  Sender: FDA-Public Use
  Company Number: PHHY2012GB099971

PATIENT
  Age: 20 Year
  Sex: Male

DRUGS (9)
  1. RISPERIDONE [Suspect]
     Indication: SCHIZOPHRENIA, PARANOID TYPE
     Dosage: 3 mg, QD
     Route: 048
     Dates: end: 201108
  2. RISPERIDONE [Suspect]
     Dosage: 2 mg, QD
     Route: 048
     Dates: start: 201108
  3. RISPERIDONE [Suspect]
     Dosage: 1 mg, QD
     Route: 048
     Dates: start: 201111
  4. RISPERIDONE [Suspect]
     Dosage: 2 mg, QD
     Route: 048
  5. RISPERIDONE [Suspect]
     Dosage: 7 mg, QD
     Route: 048
     Dates: end: 201206
  6. RISPERIDONE [Suspect]
     Dosage: 1 mg, QD
     Route: 048
     Dates: start: 201111, end: 201201
  7. RISPERIDONE [Suspect]
     Route: 048
  8. RISPERIDONE [Suspect]
     Dosage: 2 mg, UNK
     Route: 048
     Dates: start: 201108, end: 201111
  9. CANNABIS [Suspect]
     Dates: start: 201108

REACTIONS (10)
  - Hallucination [Unknown]
  - Feeling abnormal [Unknown]
  - Insomnia [Unknown]
  - Apathy [Unknown]
  - Decreased activity [Unknown]
  - Irritability [Recovered/Resolved]
  - Eating disorder [Unknown]
  - Weight decreased [Unknown]
  - Abnormal behaviour [Unknown]
  - Aggression [Unknown]
